FAERS Safety Report 5533759-0 (Version None)
Quarter: 2007Q4

REPORT INFORMATION
  Report Type: 
  Country: None (occurrence: None)
  Receive Date: 20071204
  Receipt Date: 20071127
  Transmission Date: 20080405
  Serious: Yes (Hospitalization)
  Sender: FDA-Public Use
  Company Number: US-BOEHRINGER INGELHEIM PHARMACEUTICALS, INC.-2007-BP-22816BP

PATIENT
  Sex: Female

DRUGS (12)
  1. CLONIDINE HCL [Suspect]
     Indication: HYPERTENSION
  2. TOPROL-XL [Suspect]
  3. PERCOCET [Concomitant]
  4. GABAPENTIN [Concomitant]
     Route: 048
  5. CYMBALTA [Concomitant]
  6. URISED [Concomitant]
  7. STOOL SOFTENER [Concomitant]
  8. NITROGLYCERIN [Concomitant]
     Indication: CHEST PAIN
  9. INSULIN HUMULIN [Concomitant]
  10. CYCLOBENZAPRINE HCL [Concomitant]
  11. ISOBIDE DN [Concomitant]
  12. CLINODINE [Concomitant]

REACTIONS (2)
  - BLOOD PRESSURE INCREASED [None]
  - MENTAL DISORDER [None]
